FAERS Safety Report 6279300-9 (Version None)
Quarter: 2009Q3

REPORT INFORMATION
  Report Type: 
  Country: None (occurrence: None)
  Receive Date: 20090723
  Receipt Date: 20080929
  Transmission Date: 20100115
  Serious: No
  Sender: FDA-Public Use
  Company Number: US-AMGEN-KDL311042

PATIENT
  Age: 57 Year
  Sex: Male
  Weight: 89.4 kg

DRUGS (8)
  1. PROCRIT [Suspect]
     Indication: ANAEMIA OF MALIGNANT DISEASE
     Dates: start: 20080101, end: 20080101
  2. RITUXAN [Concomitant]
     Dates: start: 20080101
  3. FLUDARA [Concomitant]
     Dates: start: 20080101
  4. CYTOXAN [Concomitant]
     Dates: start: 20080101
  5. UNSPECIFIED STEROIDS [Concomitant]
     Dates: start: 20080101, end: 20080101
  6. ATENOLOL [Concomitant]
  7. NORVASC [Concomitant]
  8. ACCUPRIL [Concomitant]

REACTIONS (2)
  - HAEMOGLOBIN DECREASED [None]
  - PALPITATIONS [None]
